FAERS Safety Report 13324318 (Version 2)
Quarter: 2017Q1

REPORT INFORMATION
  Report Type: Spontaneous
  Country: PT (occurrence: PT)
  Receive Date: 20170310
  Receipt Date: 20170328
  Transmission Date: 20170428
  Serious: Yes (Other)
  Sender: FDA-Public Use
  Company Number: PT-PFIZER INC-2017080819

PATIENT
  Age: 3 Year
  Sex: Female
  Weight: 16 kg

DRUGS (3)
  1. ZITHROMAX [Suspect]
     Active Substance: AZITHROMYCIN DIHYDRATE
     Indication: TONSILLITIS BACTERIAL
     Dosage: 4 ML, DAILY
     Route: 048
     Dates: start: 20170221, end: 20170221
  2. ZITHROMAX [Suspect]
     Active Substance: AZITHROMYCIN DIHYDRATE
     Indication: SINUSITIS
  3. BEN-U-RON [Concomitant]
     Indication: PYREXIA
     Dosage: 5.5 ML, DAILY
     Route: 048
     Dates: start: 20170219, end: 20170220

REACTIONS (4)
  - Product quality issue [Recovered/Resolved]
  - Rash pruritic [Recovered/Resolved]
  - Abdominal pain [Recovered/Resolved]
  - Papule [Recovered/Resolved]

NARRATIVE: CASE EVENT DATE: 20170221
